FAERS Safety Report 6657999-2 (Version None)
Quarter: 2010Q1

REPORT INFORMATION
  Report Type: 
  Country: None (occurrence: None)
  Receive Date: 20100326
  Receipt Date: 20100318
  Transmission Date: 20100710
  Serious: Yes (Hospitalization)
  Sender: FDA-Public Use
  Company Number: TPA2010A01214

PATIENT
  Age: 8 Decade
  Sex: Female

DRUGS (1)
  1. KAPIDEX [Suspect]
     Indication: DRUG USE FOR UNKNOWN INDICATION
     Dosage: , PER ORAL OOO

REACTIONS (1)
  - HOSPITALISATION [None]
